FAERS Safety Report 24824628 (Version 2)
Quarter: 2025Q2

REPORT INFORMATION
  Report Type: Spontaneous
  Country: FR (occurrence: FR)
  Receive Date: 20250109
  Receipt Date: 20250405
  Transmission Date: 20250716
  Serious: Yes (Hospitalization, Other)
  Sender: BOEHRINGER INGELHEIM
  Company Number: None

PATIENT
  Age: 72 Year
  Sex: Male
  Weight: 64.8 kg

DRUGS (8)
  1. OFEV [Suspect]
     Active Substance: NINTEDANIB
     Indication: Idiopathic pulmonary fibrosis
     Dates: start: 20231019, end: 20240812
  2. OFEV [Suspect]
     Active Substance: NINTEDANIB
     Dates: start: 20240812, end: 20241113
  3. COVERAM 5 mg/10 mg, comprim? [Concomitant]
     Indication: Hypertension
  4. NEBILOX 5 mg, comprim? quadris?cable [Concomitant]
     Indication: Hypertension
  5. ALDACTAZINE 25 mg/15 mg, comprim? s?cable [Concomitant]
     Indication: Hypertension
  6. DAPAGLIFLOZIN PROPANEDIOL [Concomitant]
     Active Substance: DAPAGLIFLOZIN PROPANEDIOL
     Indication: Chronic kidney disease
  7. CRESTOR [Concomitant]
     Active Substance: ROSUVASTATIN CALCIUM
     Indication: Dyslipidaemia
  8. SILODOSIN [Concomitant]
     Active Substance: SILODOSIN
     Indication: Benign prostatic hyperplasia

REACTIONS (6)
  - Chronic kidney disease [Recovered/Resolved]
  - Diarrhoea [Recovered/Resolved]
  - Pulmonary embolism [Recovered/Resolved]
  - Ischaemic stroke [Recovering/Resolving]
  - Deep vein thrombosis [Recovering/Resolving]
  - Metabolic acidosis [Recovered/Resolved]

NARRATIVE: CASE EVENT DATE: 20231130
